FAERS Safety Report 7019626-4 (Version None)
Quarter: 2010Q3

REPORT INFORMATION
  Report Type: 
  Country: None (occurrence: None)
  Receive Date: 20100928
  Receipt Date: 20100928
  Transmission Date: 20110219
  Serious: Yes (Other)
  Sender: FDA-Public Use
  Company Number: None

PATIENT
  Age: 48 Year
  Sex: Male
  Weight: 80.2867 kg

DRUGS (2)
  1. KLONOPIN [Suspect]
     Indication: MUSCLE SPASMS
     Dosage: 0.25MG ONCE PO
     Route: 048
     Dates: start: 20100908, end: 20100908
  2. KLONOPIN [Suspect]
     Indication: NEURALGIA
     Dosage: 0.25MG ONCE PO
     Route: 048
     Dates: start: 20100908, end: 20100908

REACTIONS (2)
  - BLOOD PRESSURE DECREASED [None]
  - MALAISE [None]
